FAERS Safety Report 5601392-8 (Version None)
Quarter: 2008Q1

REPORT INFORMATION
  Report Type: 
  Country: None (occurrence: None)
  Receive Date: 20080124
  Receipt Date: 20080115
  Transmission Date: 20080703
  Serious: Yes (Death)
  Sender: FDA-Public Use
  Company Number: CA-ELI_LILLY_AND_COMPANY-CA200801000218

PATIENT
  Sex: Female
  Weight: 69.3 kg

DRUGS (8)
  1. LISPRO REGLISPRO [Suspect]
     Dosage: 18 IU, DAILY (1/D)
     Route: 058
     Dates: start: 20071210
  2. LANTUS [Suspect]
     Dosage: 58 IU, UNK
     Dates: start: 20071107
  3. METFORMIN HCL [Concomitant]
     Dosage: UNK, UNK
     Dates: start: 19991101
  4. DIAMICRON [Concomitant]
     Dates: start: 19980701
  5. ASPIRIN [Concomitant]
     Indication: PROPHYLAXIS
     Dates: start: 19970101
  6. CALCIUM GLUCONATE [Concomitant]
     Indication: PROPHYLAXIS
     Dates: start: 20000101
  7. VITAMIN E [Concomitant]
     Indication: PROPHYLAXIS
     Dates: start: 20000101
  8. LUTEIN [Concomitant]
     Indication: PROPHYLAXIS
     Dates: start: 20070101

REACTIONS (1)
  - DEATH [None]
